FAERS Safety Report 6788375-X (Version None)
Quarter: 2010Q2

REPORT INFORMATION
  Report Type: 
  Country: None (occurrence: None)
  Receive Date: 20100623
  Receipt Date: 20080327
  Transmission Date: 20101027
  Serious: Yes (Other)
  Sender: FDA-Public Use
  Company Number: US-PFIZER INC-2008009337

PATIENT
  Sex: Female
  Weight: 54.4 kg

DRUGS (5)
  1. DEPO-PROVERA SUSPENSION/INJ [Suspect]
     Indication: CONTRACEPTION
     Dosage: 1ST INJECTION/EVERY 3 MONTHS
     Dates: start: 20070219, end: 20070219
  2. DEPO-PROVERA SUSPENSION/INJ [Suspect]
     Dosage: 4TH INJECTION, INJECTION EVERY 3 MONTHS
     Dates: start: 20080124, end: 20080124
  3. KLONOPIN [Concomitant]
     Dosage: TWICE DAILY AS REQUIRED
  4. WELLBUTRIN [Concomitant]
     Dosage: TWICE DAILY
  5. DEPAKOTE [Concomitant]
     Dosage: TWICE DAILY

REACTIONS (2)
  - DRUG INEFFECTIVE [None]
  - UNINTENDED PREGNANCY [None]
